FAERS Safety Report 17717773 (Version 2)
Quarter: 2020Q4

REPORT INFORMATION
  Report Type: Other
  Country: US (occurrence: US)
  Receive Date: 20200428
  Receipt Date: 20201021
  Transmission Date: 20210113
  Serious: Yes (Other)
  Sender: FDA-Public Use
  Company Number: US-ROCHE-2588558

PATIENT
  Sex: Male
  Weight: 96.25 kg

DRUGS (1)
  1. ACTEMRA [Suspect]
     Active Substance: TOCILIZUMAB
     Indication: RHEUMATOID ARTHRITIS
     Dosage: INFUSE 800MG EVERY 4 WEEK(S)?400MG/20ML
     Route: 042
     Dates: start: 20180420

REACTIONS (2)
  - Deafness [Unknown]
  - Blindness [Unknown]
